FAERS Safety Report 10937133 (Version 2)
Quarter: 2015Q2

REPORT INFORMATION
  Report Type: Spontaneous
  Country: US (occurrence: US)
  Receive Date: 20150321
  Receipt Date: 20150525
  Transmission Date: 20150821
  Serious: No
  Sender: FDA-Public Use
  Company Number: US-JNJFOC-20141012264

PATIENT
  Age: 19 Year
  Sex: Male

DRUGS (2)
  1. TOPAMAX [Suspect]
     Active Substance: TOPIRAMATE
     Indication: SEIZURE
     Route: 048
  2. TRILEPTAL [Concomitant]
     Active Substance: OXCARBAZEPINE
     Indication: SEIZURE
     Route: 065

REACTIONS (2)
  - Irritability [Unknown]
  - Aggression [Unknown]
